FAERS Safety Report 10087035 (Version 1)
Quarter: 2014Q2

REPORT INFORMATION
  Report Type: Spontaneous
  Country: US (occurrence: US)
  Receive Date: 20140418
  Receipt Date: 20140418
  Transmission Date: 20141212
  Serious: Yes (Death, Other)
  Sender: FDA-Public Use
  Company Number: US-JNJFOC-20140408434

PATIENT
  Sex: 0

DRUGS (27)
  1. DOXORUBICIN HYDROCHLORIDE (DOXIL) [Suspect]
     Indication: COLORECTAL CANCER METASTATIC
     Route: 013
  2. DOXORUBICIN HYDROCHLORIDE (DOXIL) [Suspect]
     Indication: NEOPLASM MALIGNANT
     Route: 013
  3. DOXORUBICIN HYDROCHLORIDE (DOXIL) [Suspect]
     Indication: MALIGNANT MELANOMA
     Route: 013
  4. DOXORUBICIN HYDROCHLORIDE (DOXIL) [Suspect]
     Indication: BREAST CANCER
     Route: 013
  5. CISPLATIN [Suspect]
     Indication: COLORECTAL CANCER METASTATIC
     Route: 013
  6. CISPLATIN [Suspect]
     Indication: NEOPLASM MALIGNANT
     Route: 013
  7. CISPLATIN [Suspect]
     Indication: MALIGNANT MELANOMA
     Route: 013
  8. CISPLATIN [Suspect]
     Indication: BREAST CANCER
     Route: 013
  9. OXALIPLATIN [Suspect]
     Indication: COLORECTAL CANCER METASTATIC
     Route: 013
  10. OXALIPLATIN [Suspect]
     Indication: NEOPLASM MALIGNANT
     Route: 013
  11. OXALIPLATIN [Suspect]
     Indication: MALIGNANT MELANOMA
     Route: 013
  12. OXALIPLATIN [Suspect]
     Indication: BREAST CANCER
     Route: 013
  13. PACLITAXEL [Suspect]
     Indication: COLORECTAL CANCER METASTATIC
     Route: 013
  14. PACLITAXEL [Suspect]
     Indication: MALIGNANT MELANOMA
     Route: 013
  15. PACLITAXEL [Suspect]
     Indication: BREAST CANCER
     Route: 013
  16. VINBLASTINE [Suspect]
     Indication: COLORECTAL CANCER METASTATIC
     Route: 013
  17. VINBLASTINE [Suspect]
     Indication: MALIGNANT MELANOMA
     Route: 013
  18. VINBLASTINE [Suspect]
     Indication: BREAST CANCER
     Route: 013
  19. IRINOTECAN [Suspect]
     Indication: NEOPLASM MALIGNANT
     Route: 013
  20. IRINOTECAN [Suspect]
     Indication: MALIGNANT MELANOMA
     Route: 013
  21. IRINOTECAN [Suspect]
     Indication: BREAST CANCER
     Route: 013
  22. CYCLOPHOSPHAMIDE [Suspect]
     Indication: COLORECTAL CANCER METASTATIC
     Route: 013
  23. CYCLOPHOSPHAMIDE [Suspect]
     Indication: MALIGNANT MELANOMA
     Route: 013
  24. CYCLOPHOSPHAMIDE [Suspect]
     Indication: BREAST CANCER
     Route: 013
  25. HEPARIN [Concomitant]
     Indication: PROPHYLAXIS
     Route: 013
  26. WARFARIN [Concomitant]
     Indication: PROPHYLAXIS
     Route: 065
  27. DEXAMETASONE [Concomitant]
     Indication: PROPHYLAXIS
     Route: 042

REACTIONS (21)
  - Disease progression [Fatal]
  - Neutropenia [Unknown]
  - Febrile neutropenia [Unknown]
  - Thrombocytopenia [Unknown]
  - Anaemia [Unknown]
  - Leukopenia [Unknown]
  - Hyperbilirubinaemia [Unknown]
  - Alanine aminotransferase increased [Unknown]
  - Nausea [Unknown]
  - Decreased appetite [Unknown]
  - Vomiting [Unknown]
  - Fatigue [Unknown]
  - Abdominal pain [Unknown]
  - Hypertension [Unknown]
  - Neuropathy peripheral [Unknown]
  - Pain [Unknown]
  - Pyrexia [Unknown]
  - Constipation [Unknown]
  - Diarrhoea [Unknown]
  - Incorrect route of drug administration [Unknown]
  - Wrong technique in drug usage process [Unknown]
